FAERS Safety Report 22647766 (Version 1)
Quarter: 2023Q2

REPORT INFORMATION
  Report Type: Spontaneous
  Country: CN (occurrence: None)
  Receive Date: 20230628
  Receipt Date: 20230628
  Transmission Date: 20230721
  Serious: Yes (Hospitalization)
  Sender: FDA-Public Use
  Company Number: 2023A144638

PATIENT
  Age: 25724 Day
  Sex: Male

DRUGS (4)
  1. BRILINTA [Suspect]
     Active Substance: TICAGRELOR
     Indication: Stent placement
     Route: 048
     Dates: start: 20221102, end: 20230525
  2. BRILINTA [Suspect]
     Active Substance: TICAGRELOR
     Indication: Arteriosclerosis
     Route: 048
     Dates: start: 20221102, end: 20230525
  3. INDOBUFEN [Suspect]
     Active Substance: INDOBUFEN
     Indication: Stent placement
     Route: 048
     Dates: start: 20221102, end: 20230525
  4. INDOBUFEN [Suspect]
     Active Substance: INDOBUFEN
     Indication: Arteriosclerosis
     Route: 048
     Dates: start: 20221102, end: 20230525

REACTIONS (1)
  - Coagulopathy [Recovering/Resolving]

NARRATIVE: CASE EVENT DATE: 20230525
